FAERS Safety Report 4449487-9 (Version None)
Quarter: 2004Q3

REPORT INFORMATION
  Report Type: 
  Country: None (occurrence: None)
  Receive Date: 20040910
  Receipt Date: 20040910
  Transmission Date: 20050211
  Serious: Yes (Life-Threatening)
  Sender: FDA-Public Use
  Company Number: None

PATIENT
  Sex: Female
  Weight: 102 kg

DRUGS (6)
  1. THALIDOMIDE  200MG  CELGENE [Suspect]
     Indication: MULTIPLE MYELOMA
     Dosage: 200MG  DAILY  ORAL
     Route: 048
     Dates: start: 20040809, end: 20040909
  2. POTASSIUM CHLORIDE [Concomitant]
  3. VICODIN [Concomitant]
  4. PROZAC [Concomitant]
  5. FUROSEMIDE [Concomitant]
  6. FENTANYL [Concomitant]

REACTIONS (1)
  - PULMONARY EMBOLISM [None]
